FAERS Safety Report 19922213 (Version 9)
Quarter: 2025Q2

REPORT INFORMATION
  Report Type: Spontaneous
  Country: US (occurrence: US)
  Receive Date: 20211005
  Receipt Date: 20250430
  Transmission Date: 20250717
  Serious: Yes (Hospitalization, Other)
  Sender: PFIZER
  Company Number: US-PFIZER INC-202101264275

PATIENT
  Age: 52 Year
  Sex: Female
  Weight: 74.376 kg

DRUGS (4)
  1. PREMARIN [Suspect]
     Active Substance: ESTROGENS, CONJUGATED
     Indication: Hormone replacement therapy
     Dates: start: 198506, end: 199909
  2. PREMARIN [Suspect]
     Active Substance: ESTROGENS, CONJUGATED
     Indication: Menopause
     Dates: end: 2000
  3. SYNTHROID [Concomitant]
     Active Substance: LEVOTHYROXINE SODIUM
     Indication: Thyroid disorder
     Dates: start: 196506
  4. SYNTHROID [Concomitant]
     Active Substance: LEVOTHYROXINE SODIUM
     Dates: start: 196509

REACTIONS (8)
  - Breast cancer [Unknown]
  - Intraductal proliferative breast lesion [Unknown]
  - Breast cyst [Unknown]
  - Alopecia [Unknown]
  - Breast calcifications [Not Recovered/Not Resolved]
  - Fibrocystic breast disease [Unknown]
  - Weight increased [Unknown]
  - Hair growth abnormal [Unknown]

NARRATIVE: CASE EVENT DATE: 19990101
